FAERS Safety Report 7342007-0 (Version None)
Quarter: 2011Q1

REPORT INFORMATION
  Report Type: 
  Country: None (occurrence: None)
  Receive Date: 20110309
  Receipt Date: 20110307
  Transmission Date: 20110831
  Serious: Yes (Hospitalization)
  Sender: FDA-Public Use
  Company Number: FR-ABBOTT-11P-056-0709887-00

PATIENT
  Age: 29 Year
  Sex: Female

DRUGS (4)
  1. ALCOHOL [Concomitant]
     Indication: PRODUCT USED FOR UNKNOWN INDICATION
  2. DEPAKOTE [Suspect]
     Indication: INTENTIONAL OVERDOSE
     Dosage: ONCE
     Route: 048
     Dates: start: 20110227, end: 20110227
  3. ANTIDEPRESSANTS [Concomitant]
     Indication: PRODUCT USED FOR UNKNOWN INDICATION
  4. DEPAKOTE [Suspect]
     Indication: BIPOLAR DISORDER

REACTIONS (5)
  - SEDATION [None]
  - NAUSEA [None]
  - DRUG LEVEL ABOVE THERAPEUTIC [None]
  - VOMITING [None]
  - INTENTIONAL OVERDOSE [None]
